FAERS Safety Report 5174291-6 (Version None)
Quarter: 2006Q4

REPORT INFORMATION
  Report Type: 
  Country: None (occurrence: None)
  Receive Date: 20061214
  Receipt Date: 20061110
  Transmission Date: 20070319
  Serious: Yes (Hospitalization)
  Sender: FDA-Public Use
  Company Number: DEWYE492410NOV06

PATIENT
  Sex: Female

DRUGS (10)
  1. ENBREL [Suspect]
     Indication: RHEUMATOID ARTHRITIS
     Route: 058
     Dates: start: 20040401, end: 20061013
  2. ARAVA [Suspect]
     Indication: RHEUMATOID ARTHRITIS
     Dosage: 10 - 20 MG DAILY
     Route: 048
     Dates: start: 20000301, end: 20061101
  3. DECORTIN [Concomitant]
     Route: 065
  4. CARVEDILOL [Concomitant]
     Route: 065
  5. HUMIRA [Concomitant]
     Indication: RHEUMATOID ARTHRITIS
     Dosage: UNKNOWN
     Route: 058
     Dates: start: 20041001, end: 20060101
  6. IDEOS [Concomitant]
     Route: 065
  7. AMIOBETA [Concomitant]
     Route: 065
  8. COAPROVEL [Concomitant]
     Route: 065
  9. INSULIN [Concomitant]
     Route: 065
  10. DOXAZOSIN MESYLATE [Concomitant]
     Route: 065

REACTIONS (4)
  - ANTI-HBC IGG ANTIBODY POSITIVE [None]
  - BONE MARROW TOXICITY [None]
  - DRUG INEFFECTIVE [None]
  - PANCYTOPENIA [None]
